FAERS Safety Report 4704217-8 (Version None)
Quarter: 2005Q2

REPORT INFORMATION
  Report Type: 
  Country: None (occurrence: None)
  Receive Date: 20050630
  Receipt Date: 20050623
  Transmission Date: 20051028
  Serious: Yes (Life-Threatening, Hospitalization)
  Sender: FDA-Public Use
  Company Number: GB-JNJFOC-20050607155

PATIENT
  Age: 42 Year
  Sex: Male
  Weight: 71.2 kg

DRUGS (2)
  1. IBUPROFEN [Suspect]
     Indication: DRUG USE FOR UNKNOWN INDICATION
     Route: 049
  2. SULFASALAZINE [Suspect]
     Indication: POLYARTHRITIS
     Route: 049
     Dates: start: 20050418, end: 20050603

REACTIONS (1)
  - NEUTROPENIC SEPSIS [None]
